FAERS Safety Report 16664899 (Version 1)
Quarter: 2019Q3

REPORT INFORMATION
  Report Type: Spontaneous
  Country: US (occurrence: US)
  Receive Date: 20190803
  Receipt Date: 20190803
  Transmission Date: 20191004
  Serious: Yes (Other)
  Sender: FDA-Public Use
  Company Number: US-ACCORD-070849

PATIENT
  Age: 64 Year
  Sex: Female

DRUGS (7)
  1. ATENOLOL/ATENOLOL HYDROCHLORIDE [Concomitant]
     Dates: start: 2010
  2. HYDROCHLOROTHIAZIDE/LOSARTAN POTASSIUM [Concomitant]
     Dates: start: 2016
  3. DOCETAXEL ACCORD [Suspect]
     Active Substance: DOCETAXEL
     Indication: BREAST CANCER
     Dosage: DOSE: 165?EVERY THREE WEEKS
     Dates: start: 20150407, end: 20150721
  4. METFORMIN [Concomitant]
     Active Substance: METFORMIN HYDROCHLORIDE
     Dates: start: 2001
  5. GLIMEPIRIDE. [Concomitant]
     Active Substance: GLIMEPIRIDE
     Dates: start: 2012
  6. CYTOXAN [Suspect]
     Active Substance: CYCLOPHOSPHAMIDE
     Indication: BREAST CANCER
     Dosage: EVERY THREE WEEKS
     Dates: start: 20150407, end: 20150721
  7. RANITIDINE. [Concomitant]
     Active Substance: RANITIDINE
     Dates: start: 2014

REACTIONS (1)
  - Alopecia [Not Recovered/Not Resolved]

NARRATIVE: CASE EVENT DATE: 201504
